FAERS Safety Report 11307368 (Version 2)
Quarter: 2015Q3

REPORT INFORMATION
  Report Type: Spontaneous
  Country: US (occurrence: US)
  Receive Date: 20150723
  Receipt Date: 20150812
  Transmission Date: 20151125
  Serious: Yes (Death, Hospitalization, Other)
  Sender: FDA-Public Use
  Company Number: US-GLAXOSMITHKLINE-US2015GSK105071

PATIENT
  Age: 60 Year
  Sex: Female
  Weight: 106.6 kg

DRUGS (14)
  1. BACLOFEN. [Concomitant]
     Active Substance: BACLOFEN
  2. COMPAZINE [Concomitant]
     Active Substance: PROCHLORPERAZINE MALEATE
  3. FRAGMIN [Concomitant]
     Active Substance: DALTEPARIN SODIUM
  4. VOTRIENT [Suspect]
     Active Substance: PAZOPANIB HYDROCHLORIDE
     Indication: UTERINE CANCER
     Dosage: 800 MG, QD
     Route: 048
     Dates: start: 20150610
  5. COLACE [Concomitant]
     Active Substance: DOCUSATE SODIUM
  6. MIRALAX [Concomitant]
     Active Substance: POLYETHYLENE GLYCOL 3350
  7. LEVOTHYROXINE. [Concomitant]
     Active Substance: LEVOTHYROXINE
  8. DILAUDID [Concomitant]
     Active Substance: HYDROMORPHONE HYDROCHLORIDE
  9. MORPHINE [Concomitant]
     Active Substance: MORPHINE
  10. VOTRIENT [Suspect]
     Active Substance: PAZOPANIB HYDROCHLORIDE
     Dosage: 800 MG, QD
     Route: 048
  11. METOPROLOL [Concomitant]
     Active Substance: METOPROLOL
  12. POTASSIUM [Concomitant]
     Active Substance: POTASSIUM
  13. ENULOSE [Concomitant]
     Active Substance: LACTULOSE
  14. DIFLUCAN [Concomitant]
     Active Substance: FLUCONAZOLE

REACTIONS (3)
  - Incorrect dose administered [Unknown]
  - Hospitalisation [Unknown]
  - Death [Fatal]

NARRATIVE: CASE EVENT DATE: 201507
